FAERS Safety Report 16819466 (Version 2)
Quarter: 2019Q3

REPORT INFORMATION
  Report Type: Spontaneous
  Country: US (occurrence: US)
  Receive Date: 20190917
  Receipt Date: 20190919
  Transmission Date: 20191005
  Serious: Yes (Other)
  Sender: FDA-Public Use
  Company Number: US-TEVA-2019-US-1107412

PATIENT
  Age: 72 Year
  Sex: Female

DRUGS (3)
  1. CLONAZEPAM. [Suspect]
     Active Substance: CLONAZEPAM
     Indication: ANXIETY
     Dates: start: 20190809
  2. CLONAZEPAM. [Suspect]
     Active Substance: CLONAZEPAM
     Dosage: 2 DOSAGE FORMS DAILY; AT BEDTIME
     Dates: start: 2003
  3. CLONAZEPAM. [Suspect]
     Active Substance: CLONAZEPAM
     Indication: PANIC ATTACK
     Dosage: SPLIT THE ACTAVIS PRODUCT IN HALF

REACTIONS (8)
  - Hiatus hernia [Unknown]
  - Therapeutic product effect decreased [Unknown]
  - Headache [Unknown]
  - Gastrooesophageal reflux disease [Unknown]
  - Restless legs syndrome [Unknown]
  - Abnormal dreams [Unknown]
  - Somnolence [Unknown]
  - Ulcer [Unknown]

NARRATIVE: CASE EVENT DATE: 2003
